FAERS Safety Report 11417339 (Version 1)
Quarter: 2015Q3

REPORT INFORMATION
  Report Type: Spontaneous
  Country: US (occurrence: US)
  Receive Date: 20150825
  Receipt Date: 20150825
  Transmission Date: 20151125
  Serious: No
  Sender: FDA-Public Use
  Company Number: US-BAYER-2015-407355

PATIENT
  Age: 90 Year
  Sex: Male
  Weight: 73.47 kg

DRUGS (1)
  1. CLARITIN [Suspect]
     Active Substance: LORATADINE
     Indication: SEASONAL ALLERGY
     Dosage: 1 DF, QD
     Route: 048

REACTIONS (2)
  - Drug ineffective [Unknown]
  - Throat irritation [Unknown]

NARRATIVE: CASE EVENT DATE: 2015
